FAERS Safety Report 7883019-8 (Version None)
Quarter: 2011Q4

REPORT INFORMATION
  Report Type: 
  Country: None (occurrence: None)
  Receive Date: 20111102
  Receipt Date: 20111028
  Transmission Date: 20120403
  Serious: Yes (Death, Hospitalization, Other)
  Sender: FDA-Public Use
  Company Number: US-BIOGENIDEC-2011BI029634

PATIENT
  Age: 64 Year
  Sex: Female
  Weight: 58 kg

DRUGS (10)
  1. BENADRYL [Concomitant]
     Indication: PREMEDICATION
     Route: 042
     Dates: start: 20110808
  2. BUPROPION HCL [Concomitant]
     Route: 048
  3. BENADRYL [Concomitant]
     Route: 042
     Dates: start: 20110808
  4. AVONEX [Concomitant]
     Indication: MULTIPLE SCLEROSIS
     Route: 030
  5. ASPIRIN [Concomitant]
  6. TYSABRI [Suspect]
     Indication: MULTIPLE SCLEROSIS
     Route: 042
     Dates: start: 20070713, end: 20110728
  7. TROSPIUM CHLORIDE [Concomitant]
     Route: 048
  8. FENTANYL-100 [Concomitant]
     Route: 042
     Dates: start: 20110808
  9. CITRUCEL [Concomitant]
  10. TYLENOL-500 [Concomitant]
     Indication: PREMEDICATION
     Route: 048
     Dates: start: 20110808

REACTIONS (3)
  - EPILEPSY [None]
  - IMMUNE RECONSTITUTION SYNDROME [None]
  - PROGRESSIVE MULTIFOCAL LEUKOENCEPHALOPATHY [None]
